FAERS Safety Report 7671066-0 (Version None)
Quarter: 2011Q3

REPORT INFORMATION
  Report Type: 
  Country: None (occurrence: None)
  Receive Date: 20110809
  Receipt Date: 20110808
  Transmission Date: 20111222
  Serious: Yes (Death, Hospitalization)
  Sender: FDA-Public Use
  Company Number: FR-AMGEN-KDC435869

PATIENT
  Age: 56 Year
  Sex: Male
  Weight: 93 kg

DRUGS (3)
  1. MINOCYCLINE HCL [Concomitant]
     Dosage: UNK
     Route: 048
     Dates: start: 20100630, end: 20100802
  2. PANITUMUMAB [Suspect]
     Indication: COLORECTAL CANCER
     Dosage: 558 MG, Q2WK
     Route: 042
     Dates: start: 20100622, end: 20100803
  3. HEXOMEDINE [Concomitant]
     Dosage: UNK
     Dates: start: 20100803

REACTIONS (3)
  - RED BLOOD CELL COUNT DECREASED [None]
  - POST PROCEDURAL HAEMORRHAGE [None]
  - COLORECTAL CANCER [None]
